FAERS Safety Report 23366218 (Version 1)
Quarter: 2024Q1

REPORT INFORMATION
  Report Type: Spontaneous
  Country: US (occurrence: US)
  Receive Date: 20240104
  Receipt Date: 20240104
  Transmission Date: 20240410
  Serious: No
  Sender: FDA-Public Use
  Company Number: US-002147023-NVSC2024US001207

PATIENT

DRUGS (1)
  1. INCLISIRAN [Suspect]
     Active Substance: INCLISIRAN
     Indication: Arteriosclerosis
     Dosage: 300 MG (DAY 1, DAY 90 AND THEN 6 MONTHS LATER
     Route: 058
     Dates: start: 202303

REACTIONS (1)
  - Low density lipoprotein increased [Unknown]
